FAERS Safety Report 7356610-5 (Version None)
Quarter: 2011Q1

REPORT INFORMATION
  Report Type: 
  Country: None (occurrence: None)
  Receive Date: 20110316
  Receipt Date: 20110303
  Transmission Date: 20110831
  Serious: Yes (Other)
  Sender: FDA-Public Use
  Company Number: GXKR2011DK01116

PATIENT
  Sex: Female

DRUGS (2)
  1. CLOZAPIN HEXAL [Suspect]
     Indication: SCHIZOPHRENIA
     Dosage: 100 MG
     Dates: start: 19760101
  2. AKINETON [Suspect]
     Indication: SCHIZOPHRENIA
     Dosage: 2 MG, UNK
     Dates: start: 19760101

REACTIONS (2)
  - TOOTH LOSS [None]
  - DENTAL CARIES [None]
